FAERS Safety Report 20606501 (Version 1)
Quarter: 2022Q1

REPORT INFORMATION
  Report Type: Spontaneous
  Country: US (occurrence: US)
  Receive Date: 20220317
  Receipt Date: 20220317
  Transmission Date: 20220423
  Serious: Yes (Hospitalization)
  Sender: FDA-Public Use
  Company Number: US-COLGATE PALMOLIVE COMPANY-20220300471

PATIENT
  Sex: Female

DRUGS (1)
  1. CHILDRENS SILLY STRAWBERRY [Suspect]
     Active Substance: SODIUM MONOFLUOROPHOSPHATE
     Dosage: ONCE FOR ABOUT 15 SECONDS
     Route: 048
     Dates: start: 20220306

REACTIONS (4)
  - Breath sounds abnormal [Not Recovered/Not Resolved]
  - Gingival swelling [Not Recovered/Not Resolved]
  - Swollen tongue [Not Recovered/Not Resolved]
  - Hypersensitivity [Not Recovered/Not Resolved]

NARRATIVE: CASE EVENT DATE: 20220306
